FAERS Safety Report 6999650-8 (Version None)
Quarter: 2010Q3

REPORT INFORMATION
  Report Type: 
  Country: None (occurrence: None)
  Receive Date: 20100920
  Receipt Date: 20100201
  Transmission Date: 20110219
  Serious: No
  Sender: FDA-Public Use
  Company Number: US-ASTRAZENECA-2010SE05284

PATIENT
  Sex: Female

DRUGS (4)
  1. SEROQUEL [Suspect]
     Indication: BIPOLAR DISORDER
     Route: 048
     Dates: start: 20080101, end: 20090101
  2. SEROQUEL [Suspect]
     Route: 048
     Dates: start: 20080101, end: 20090101
  3. SEROQUEL [Suspect]
     Route: 048
     Dates: start: 20100101, end: 20100201
  4. SEROQUEL [Suspect]
     Route: 048
     Dates: start: 20100101, end: 20100201

REACTIONS (4)
  - AGITATION [None]
  - FEELING JITTERY [None]
  - INSOMNIA [None]
  - STRESS [None]
